FAERS Safety Report 9760233 (Version 2)
Quarter: 2015Q3

REPORT INFORMATION
  Report Type: Spontaneous
  Country: US (occurrence: US)
  Receive Date: 20131216
  Receipt Date: 20150806
  Transmission Date: 20151125
  Serious: No
  Sender: FDA-Public Use
  Company Number: US-GILEAD-2010-0028398

PATIENT
  Age: 59 Year
  Sex: Female
  Weight: 102.51 kg

DRUGS (12)
  1. DAILY MULTIVITAMIN [Concomitant]
     Active Substance: VITAMINS
  2. LEVOTHYROXINE. [Concomitant]
     Active Substance: LEVOTHYROXINE
  3. ZINC SULFATE [Concomitant]
     Active Substance: ZINC SULFATE\ZINC SULFATE ANHYDROUS
  4. RIBAVIRIN. [Concomitant]
     Active Substance: RIBAVIRIN
  5. ACETAMINOPHEN. [Concomitant]
     Active Substance: ACETAMINOPHEN
  6. NADOLOL. [Concomitant]
     Active Substance: NADOLOL
  7. DIGOXIN. [Concomitant]
     Active Substance: DIGOXIN
  8. VITAMIN D [Concomitant]
     Active Substance: CHOLECALCIFEROL
  9. LETAIRIS [Suspect]
     Active Substance: AMBRISENTAN
     Indication: PULMONARY ARTERIAL HYPERTENSION
     Route: 048
     Dates: start: 20100317, end: 20100401
  10. VITAMIN A [Concomitant]
     Active Substance: VITAMIN A
  11. SPIRONOLACTONE. [Concomitant]
     Active Substance: SPIRONOLACTONE
  12. PREVACID [Concomitant]
     Active Substance: LANSOPRAZOLE

REACTIONS (2)
  - Migraine [Unknown]
  - Nausea [Unknown]
